FAERS Safety Report 10953969 (Version 1)
Quarter: 2015Q1

REPORT INFORMATION
  Report Type: Spontaneous
  Country: US (occurrence: None)
  Receive Date: 20150226
  Receipt Date: 20150226
  Transmission Date: 20150721
  Serious: Yes (Hospitalization)
  Sender: FDA-Public Use
  Company Number: TAP2004Q01324

PATIENT
  Age: 48 Year
  Sex: Male

DRUGS (3)
  1. PREVACID [Suspect]
     Active Substance: LANSOPRAZOLE
     Indication: GASTRITIS
     Dosage: 1 IN 1 D
     Route: 048
     Dates: start: 20040924
  2. LEVOXYL (LEVOTHYROXINE SODIUM) [Concomitant]
  3. CALCIUM SUPPLEMENT (CALCIUM CARBONATE) [Concomitant]

REACTIONS (1)
  - Hypocalcaemia [None]

NARRATIVE: CASE EVENT DATE: 20040928
